FAERS Safety Report 9906256 (Version 2)
Quarter: 2014Q1

REPORT INFORMATION
  Report Type: Spontaneous
  Country: US (occurrence: US)
  Receive Date: 20140218
  Receipt Date: 20140218
  Transmission Date: 20141002
  Serious: Yes (Other)
  Sender: FDA-Public Use
  Company Number: US-GE HEALTHCARE MEDICAL DIAGNOSTICS-OSCN-PR-1104S-0102

PATIENT
  Sex: Female

DRUGS (7)
  1. OMNISCAN [Suspect]
     Indication: PRODUCT USED FOR UNKNOWN INDICATION
     Route: 042
     Dates: start: 20050510, end: 20050510
  2. MAGNEVIST [Suspect]
     Indication: PRODUCT USED FOR UNKNOWN INDICATION
     Route: 042
     Dates: start: 20040911, end: 20040911
  3. MAGNEVIST [Suspect]
     Route: 042
     Dates: start: 20040916, end: 20040916
  4. MAGNEVIST [Suspect]
     Route: 042
     Dates: start: 20040917, end: 20040917
  5. MAGNEVIST [Suspect]
     Route: 042
     Dates: start: 20040917, end: 20040917
  6. MAGNEVIST [Suspect]
     Route: 042
     Dates: start: 20050517, end: 20050517
  7. MAGNEVIST [Suspect]
     Route: 042
     Dates: start: 20051005, end: 20051005

REACTIONS (1)
  - Nephrogenic systemic fibrosis [Not Recovered/Not Resolved]
